FAERS Safety Report 22093623 (Version 3)
Quarter: 2023Q2

REPORT INFORMATION
  Report Type: Spontaneous
  Country: GR (occurrence: GR)
  Receive Date: 20230314
  Receipt Date: 20230501
  Transmission Date: 20230721
  Serious: Yes (Life-Threatening, Hospitalization, Other)
  Sender: FDA-Public Use
  Company Number: GR-AMERICAN REGENT INC-2023000633

PATIENT
  Age: 76 Year
  Sex: Female
  Weight: 75 kg

DRUGS (5)
  1. FERINJECT [Suspect]
     Active Substance: FERRIC CARBOXYMALTOSE
     Indication: Iron deficiency
     Dosage: 2 AMPOULES DILUTED IN 250ML OF SODIUM CHLORIDE SOLUTION (OVER 15-30 MINUTES), (2 DOSAGE FORMS, 1 IN
     Dates: start: 20230220, end: 20230220
  2. FERINJECT [Suspect]
     Active Substance: FERRIC CARBOXYMALTOSE
     Indication: Gastric haemorrhage
  3. OMEPRAZOLE [Concomitant]
     Active Substance: OMEPRAZOLE
     Indication: Gastric ulcer haemorrhage
     Dosage: 40 MILLIGRAM X 2
     Route: 042
     Dates: start: 20230207
  4. PANTOSEC [Concomitant]
     Indication: Gastric ulcer haemorrhage
     Dosage: 40 MILLIGRAM X2
     Route: 042
     Dates: start: 20230217
  5. ISOPTIN [Concomitant]
     Active Substance: VERAPAMIL HYDROCHLORIDE
     Indication: Hypertension
     Dosage: UNK
     Route: 065

REACTIONS (2)
  - Pulmonary embolism [Recovering/Resolving]
  - Deep vein thrombosis [Not Recovered/Not Resolved]

NARRATIVE: CASE EVENT DATE: 20230220
